FAERS Safety Report 9463953 (Version 2)
Quarter: 2013Q3

REPORT INFORMATION
  Report Type: Spontaneous
  Country: US (occurrence: US)
  Receive Date: 20130819
  Receipt Date: 20130821
  Transmission Date: 20140515
  Serious: Yes (Other)
  Sender: FDA-Public Use
  Company Number: US-RB-057103-13

PATIENT
  Age: 16 Year
  Sex: Male

DRUGS (1)
  1. DELSYM ADULT ORANGE [Suspect]
     Indication: INTENTIONAL DRUG MISUSE
     Dosage: TOOK ENTIRE BOTTLE
     Route: 048
     Dates: start: 20130807

REACTIONS (4)
  - Intentional drug misuse [Recovered/Resolved]
  - Dysarthria [Recovered/Resolved]
  - Glassy eyes [Recovered/Resolved]
  - Confusional state [Recovered/Resolved]
